FAERS Safety Report 17872545 (Version 1)
Quarter: 2020Q2

REPORT INFORMATION
  Report Type: Spontaneous
  Country: US (occurrence: IN)
  Receive Date: 20200608
  Receipt Date: 20200608
  Transmission Date: 20200714
  Serious: Yes (Life-Threatening, Hospitalization, Other)
  Sender: FDA-Public Use
  Company Number: IN-AKRON, INC.-2085548

PATIENT
  Sex: Female

DRUGS (2)
  1. ADENOSINE. [Concomitant]
     Active Substance: ADENOSINE
  2. TERBUTALINE SULFATE. [Suspect]
     Active Substance: TERBUTALINE SULFATE
     Indication: TOCOLYSIS

REACTIONS (1)
  - Arrhythmia supraventricular [Recovered/Resolved]
